FAERS Safety Report 10064727 (Version 1)
Quarter: 2014Q2

REPORT INFORMATION
  Report Type: Spontaneous
  Country: SE (occurrence: SE)
  Receive Date: 20140408
  Receipt Date: 20140408
  Transmission Date: 20141212
  Serious: Yes (Death)
  Sender: FDA-Public Use
  Company Number: SE-TEVA-473107ISR

PATIENT
  Sex: Male

DRUGS (1)
  1. DIMOR [Suspect]
     Route: 048

REACTIONS (2)
  - Overdose [Fatal]
  - Choking [Fatal]
